FAERS Safety Report 9386026 (Version 1)
Quarter: 2013Q3

REPORT INFORMATION
  Report Type: Spontaneous
  Country: FR (occurrence: FR)
  Receive Date: 20130705
  Receipt Date: 20130705
  Transmission Date: 20140515
  Serious: Yes (Life-Threatening, Hospitalization, Other)
  Sender: FDA-Public Use
  Company Number: FR-ABBOTT-13P-056-1114245-00

PATIENT
  Age: 31 Year
  Sex: Female

DRUGS (4)
  1. KALETRA 200/50 [Suspect]
     Indication: PRODUCT USED FOR UNKNOWN INDICATION
     Dosage: 2 - 200MG/50MG TABLETS DAILY
     Route: 048
     Dates: start: 20130515, end: 20130519
  2. ISENTRESS [Suspect]
     Indication: PRODUCT USED FOR UNKNOWN INDICATION
     Route: 048
     Dates: start: 20130515, end: 20130519
  3. ZERIT [Suspect]
     Indication: PRODUCT USED FOR UNKNOWN INDICATION
     Route: 048
     Dates: start: 20130515, end: 20130519
  4. BACTRIM [Concomitant]
     Indication: PRODUCT USED FOR UNKNOWN INDICATION

REACTIONS (16)
  - Grand mal convulsion [Recovered/Resolved]
  - Treatment noncompliance [Recovered/Resolved]
  - Anaemia [Unknown]
  - Renal failure [Unknown]
  - General physical condition abnormal [Unknown]
  - Kaposi^s sarcoma [Unknown]
  - Opportunistic infection [Unknown]
  - Major depression [Unknown]
  - Acquired immunodeficiency syndrome [Unknown]
  - Convulsion [Recovering/Resolving]
  - Convulsion [Recovering/Resolving]
  - Convulsion [Recovering/Resolving]
  - Convulsion [Recovering/Resolving]
  - Convulsion [Recovering/Resolving]
  - Convulsion [Recovering/Resolving]
  - Convulsion [Recovering/Resolving]
